APPROVED DRUG PRODUCT: MAXAQUIN
Active Ingredient: LOMEFLOXACIN HYDROCHLORIDE
Strength: EQ 400MG BASE
Dosage Form/Route: TABLET;ORAL
Application: N020013 | Product #001
Applicant: PHARMACIA CORP
Approved: Feb 21, 1992 | RLD: No | RS: No | Type: DISCN